FAERS Safety Report 6365926-0 (Version None)
Quarter: 2009Q3

REPORT INFORMATION
  Report Type: 
  Country: None (occurrence: None)
  Receive Date: 20090919
  Receipt Date: 20090827
  Transmission Date: 20100115
  Serious: No
  Sender: FDA-Public Use
  Company Number: US-ABBOTT-09P-163-0594095-00

PATIENT
  Sex: Female
  Weight: 54.48 kg

DRUGS (10)
  1. HUMIRA [Suspect]
     Indication: SJOGREN'S SYNDROME
     Route: 058
     Dates: start: 20090818
  2. HUMIRA [Suspect]
     Indication: SYSTEMIC LUPUS ERYTHEMATOSUS
  3. PLAQUENIL [Concomitant]
     Indication: SJOGREN'S SYNDROME
     Route: 048
  4. PLAQUENIL [Concomitant]
     Indication: SYSTEMIC LUPUS ERYTHEMATOSUS
  5. METHOTREXATE [Concomitant]
     Indication: SJOGREN'S SYNDROME
     Route: 050
  6. METHOTREXATE [Concomitant]
     Indication: SYSTEMIC LUPUS ERYTHEMATOSUS
  7. VITAMIN B-12 [Concomitant]
     Indication: SYSTEMIC LUPUS ERYTHEMATOSUS
     Dosage: UNKNOWN
     Route: 060
  8. FOLIC ACID [Concomitant]
     Indication: MEDICAL DIET
     Route: 048
  9. LYRICA [Concomitant]
     Indication: SYSTEMIC LUPUS ERYTHEMATOSUS
     Route: 048
  10. LYRICA [Concomitant]
     Indication: SJOGREN'S SYNDROME

REACTIONS (4)
  - DECREASED APPETITE [None]
  - DIARRHOEA [None]
  - HEADACHE [None]
  - WEIGHT DECREASED [None]
